FAERS Safety Report 19881854 (Version 1)
Quarter: 2021Q3

REPORT INFORMATION
  Report Type: Spontaneous
  Country: CA (occurrence: CA)
  Receive Date: 20210924
  Receipt Date: 20210924
  Transmission Date: 20211014
  Serious: Yes (Hospitalization)
  Sender: FDA-Public Use
  Company Number: CA-TEVA-2021-CA-1956117

PATIENT
  Age: 93 Year
  Sex: Male

DRUGS (10)
  1. ATROPINE. [Concomitant]
     Active Substance: ATROPINE
  2. SIMVASTATIN. [Concomitant]
     Active Substance: SIMVASTATIN
  3. FENTANYL. [Suspect]
     Active Substance: FENTANYL
     Indication: SEDATION
     Route: 065
  4. NITROGLYCERIN. [Concomitant]
     Active Substance: NITROGLYCERIN
  5. MIDAZOLAM (UNKNOWN) [Suspect]
     Active Substance: MIDAZOLAM HYDROCHLORIDE
     Route: 065
  6. ATENOLOL TABLETS, BP [Concomitant]
     Active Substance: ATENOLOL
  7. ASPIRIN. [Concomitant]
     Active Substance: ASPIRIN
  8. LISINOPRIL /HYDROCHLOROTHIAZIDE [Concomitant]
     Active Substance: HYDROCHLOROTHIAZIDE\LISINOPRIL
  9. MORPHINE [Concomitant]
     Active Substance: MORPHINE
  10. XYLOCAINE [Concomitant]
     Active Substance: LIDOCAINE HYDROCHLORIDE

REACTIONS (2)
  - Blood pressure decreased [Unknown]
  - Unresponsive to stimuli [Unknown]
